FAERS Safety Report 6383084-3 (Version None)
Quarter: 2009Q3

REPORT INFORMATION
  Report Type: 
  Country: None (occurrence: None)
  Receive Date: 20090928
  Receipt Date: 20090916
  Transmission Date: 20100115
  Serious: Yes (Other)
  Sender: FDA-Public Use
  Company Number: 2009-03786

PATIENT
  Age: 87 Year
  Sex: Female
  Weight: 60.5 kg

DRUGS (14)
  1. VELCADE [Suspect]
     Indication: MULTIPLE MYELOMA
     Dates: start: 20090804
  2. SIMVASTATIN [Concomitant]
  3. LOPRESSOR [Concomitant]
  4. CALCIUM WITH VITAMIN D (ERGOCALCIFEROL, CALCIUM SODIUM LACTATE, CALCIU [Concomitant]
  5. FOSAMAX [Concomitant]
  6. COLACE (DOCUSATE SODIUM) [Concomitant]
  7. PLAVIX [Concomitant]
  8. SYNTHROID [Concomitant]
  9. ASPIRIN [Concomitant]
  10. GLUCOSAMINE W/CHONDROITIN SULFATES (GLUCOSAMINE SULFATE, MANGANESE, CH [Concomitant]
  11. MULTIVITAMIN [Concomitant]
  12. BENAZEPRIL HYDROCHLORIDE [Concomitant]
  13. LUTEIN (PROGESTERONE) [Concomitant]
  14. HYDROCHLOROTHIAZIDE [Concomitant]

REACTIONS (3)
  - FATIGUE [None]
  - HERPES ZOSTER [None]
  - PULMONARY FIBROSIS [None]
